FAERS Safety Report 15769579 (Version 1)
Quarter: 2018Q4

REPORT INFORMATION
  Report Type: Spontaneous
  Country: ES (occurrence: ES)
  Receive Date: 20181228
  Receipt Date: 20181228
  Transmission Date: 20190205
  Serious: Yes (Other)
  Sender: FDA-Public Use
  Company Number: ES-AXELLIA-002137

PATIENT
  Age: 82 Year
  Sex: Female

DRUGS (2)
  1. VORICONAZOLE. [Suspect]
     Active Substance: VORICONAZOLE
     Indication: BRONCHOPULMONARY ASPERGILLOSIS ALLERGIC
     Dosage: EVERY 12 H FOR 16 WEEKS
  2. PREDNISONE. [Interacting]
     Active Substance: PREDNISONE
     Indication: BRONCHOPULMONARY ASPERGILLOSIS ALLERGIC

REACTIONS (5)
  - Drug interaction [Recovering/Resolving]
  - Myalgia [Unknown]
  - Drug-induced liver injury [Unknown]
  - Photophobia [Recovered/Resolved]
  - Asthenia [Recovered/Resolved]
